FAERS Safety Report 20346884 (Version 1)
Quarter: 2022Q1

REPORT INFORMATION
  Report Type: Spontaneous
  Country: US (occurrence: None)
  Receive Date: 20220118
  Receipt Date: 20220118
  Transmission Date: 20220423
  Serious: Yes (Hospitalization)
  Sender: FDA-Public Use
  Company Number: None

PATIENT
  Age: 59 Year
  Sex: Male

DRUGS (1)
  1. CAPECITABINE [Suspect]
     Active Substance: CAPECITABINE
     Indication: Product used for unknown indication
     Dosage: FREQUENCY : TWICE A DAY;?
     Route: 048
     Dates: start: 202112

REACTIONS (7)
  - Viral infection [None]
  - Cough [None]
  - Productive cough [None]
  - Body temperature increased [None]
  - Lymphadenopathy [None]
  - Vision blurred [None]
  - Heart rate increased [None]

NARRATIVE: CASE EVENT DATE: 20220110
